FAERS Safety Report 9847289 (Version 3)
Quarter: 2015Q2

REPORT INFORMATION
  Report Type: Report from Study
  Country: BR (occurrence: BR)
  Receive Date: 20140127
  Receipt Date: 20150417
  Transmission Date: 20150821
  Serious: Yes (Hospitalization, Other)
  Sender: FDA-Public Use
  Company Number: BR-ABBVIE-14P-020-1192509-00

PATIENT
  Age: 53 Year
  Sex: Female
  Weight: 80 kg

DRUGS (12)
  1. HUMIRA [Suspect]
     Active Substance: ADALIMUMAB
     Indication: RHEUMATOID ARTHRITIS
     Route: 058
     Dates: start: 20120713, end: 20131028
  2. COMPOUNDED MEDICATION [Concomitant]
     Indication: ARTHRITIS
     Route: 048
     Dates: start: 1996
  3. PANTOPRAZOLE [Concomitant]
     Active Substance: PANTOPRAZOLE SODIUM
     Indication: GASTRIC DISORDER
     Dosage: 2 OR 3 TABLETS DAILY
     Route: 048
     Dates: start: 1987
  4. ENALAPRIL [Concomitant]
     Active Substance: ENALAPRIL
     Indication: HYPERTENSION
     Route: 048
  5. AMYTRIL [Concomitant]
     Active Substance: AMITRIPTYLINE HYDROCHLORIDE
     Indication: ANTIDEPRESSANT THERAPY
     Route: 048
     Dates: start: 1987
  6. KETOPROPHEN+PREDNISONE+TRAMADOL+FAMOTIDINE+FOLIC ACID [Concomitant]
     Indication: ARTHRITIS
     Dosage: MAGISTRAL FORMULATION 50MG + 5MG + 50MG + 40MG + 1MG
     Route: 048
     Dates: start: 1987
  7. NORTRIPTYLINE, CYCLOBENZAPRINE, FAMOTIDINE, KETOPROFEN, PREDNISONE [Concomitant]
     Indication: ARTHRITIS
     Dosage: MAGISTRAL FORMULATION: 25MG + 5MG + 50MG + 50MG + 5MG
     Route: 048
     Dates: start: 1986
  8. RIVOTRIL [Concomitant]
     Active Substance: CLONAZEPAM
     Indication: SLEEP DISORDER THERAPY
     Route: 048
     Dates: start: 1987
  9. ANADOR [Concomitant]
     Indication: PAIN
  10. HUMIRA [Suspect]
     Active Substance: ADALIMUMAB
     Route: 058
     Dates: start: 201311
  11. ATENOLOL. [Concomitant]
     Active Substance: ATENOLOL
     Indication: HYPERTENSION
     Route: 048
  12. UNSPECIFIED MEDICATION [Concomitant]
     Active Substance: UNSPECIFIED INGREDIENT
     Indication: PAIN

REACTIONS (4)
  - Somnolence [Not Recovered/Not Resolved]
  - Osteoarthritis [Recovering/Resolving]
  - Rib fracture [Recovered/Resolved]
  - Drug ineffective [Not Recovered/Not Resolved]

NARRATIVE: CASE EVENT DATE: 201312
